FAERS Safety Report 6488681-2 (Version None)
Quarter: 2009Q4

REPORT INFORMATION
  Report Type: 
  Country: None (occurrence: None)
  Receive Date: 20091207
  Receipt Date: 20091124
  Transmission Date: 20100525
  Serious: Yes (Other)
  Sender: FDA-Public Use
  Company Number: 1000010509

PATIENT
  Sex: Female

DRUGS (9)
  1. CITALOPRAM HYDROBROMIDE [Suspect]
     Dosage: 40 MG (20MG, 2 IN 1 D), ORAL
     Route: 048
     Dates: start: 20090526
  2. LORAZEPAM [Concomitant]
  3. TRAZODONE HYDROCHLORIDE [Concomitant]
  4. ADIRO [Concomitant]
  5. ZOCOR [Concomitant]
  6. OMEPRAZOLE [Concomitant]
  7. DIOVAN HCT [Concomitant]
  8. CIPROFLOXACIN [Concomitant]
  9. ACETAMINOPHEN [Concomitant]

REACTIONS (2)
  - BRUXISM [None]
  - PAIN IN JAW [None]
